FAERS Safety Report 8333864-X (Version None)
Quarter: 2012Q2

REPORT INFORMATION
  Report Type: 
  Country: None (occurrence: None)
  Receive Date: 20120503
  Receipt Date: 20110124
  Transmission Date: 20120825
  Serious: Yes (Other)
  Sender: FDA-Public Use
  Company Number: US-TEVA-2011000028

PATIENT
  Sex: Female
  Weight: 81.72 kg

DRUGS (2)
  1. NUVIGIL [Suspect]
     Indication: HYPERSOMNIA
     Dosage: 75 MILLIGRAM;
     Route: 048
     Dates: start: 20091211, end: 20101201
  2. NUVIGIL [Suspect]
     Dosage: 42.8571 MILLIGRAM;
     Route: 048
     Dates: start: 20101201

REACTIONS (2)
  - DEPRESSION [None]
  - DRUG ADMINISTRATION ERROR [None]
